FAERS Safety Report 23769988 (Version 1)
Quarter: 2024Q2

REPORT INFORMATION
  Report Type: Spontaneous
  Country: CN (occurrence: None)
  Receive Date: 20240422
  Receipt Date: 20240422
  Transmission Date: 20240716
  Serious: Yes (Other)
  Sender: FDA-Public Use
  Company Number: 2024A088735

PATIENT
  Sex: Male

DRUGS (2)
  1. SELUMETINIB [Suspect]
     Active Substance: SELUMETINIB
     Indication: Cafe au lait spots
     Dosage: 20 MG IN THE MORNING AND 10 MG IN THE EVENING
     Route: 048
  2. SELUMETINIB [Suspect]
     Active Substance: SELUMETINIB
     Indication: Neurofibroma
     Dosage: 20 MG IN THE MORNING AND 10 MG IN THE EVENING
     Route: 048

REACTIONS (8)
  - Urticaria [Recovered/Resolved]
  - Folliculitis [Recovered/Resolved]
  - Mouth ulceration [Recovered/Resolved]
  - Paronychia [Recovered/Resolved]
  - Dry skin [Recovered/Resolved]
  - Blood creatine phosphokinase increased [Recovered/Resolved]
  - Rash [Recovered/Resolved]
  - Diarrhoea [Recovered/Resolved]
